FAERS Safety Report 12584574 (Version 2)
Quarter: 2016Q3

REPORT INFORMATION
  Report Type: Spontaneous
  Country: US (occurrence: US)
  Receive Date: 20160722
  Receipt Date: 20160831
  Transmission Date: 20161109
  Serious: Yes (Hospitalization)
  Sender: FDA-Public Use
  Company Number: US-BAUSCH-BL-2016-016734

PATIENT
  Age: 61 Year
  Sex: Female

DRUGS (1)
  1. BESIVANCE [Suspect]
     Active Substance: BESIFLOXACIN
     Indication: STAPHYLOCOCCUS TEST
     Route: 047
     Dates: start: 20160629

REACTIONS (2)
  - Staphylococcus test [Unknown]
  - Condition aggravated [Unknown]
